FAERS Safety Report 8221228-9 (Version None)
Quarter: 2012Q1

REPORT INFORMATION
  Report Type: 
  Country: None (occurrence: None)
  Receive Date: 20120320
  Receipt Date: 20120308
  Transmission Date: 20120608
  Serious: Yes (Other)
  Sender: FDA-Public Use
  Company Number: PHHY2012BR001413

PATIENT
  Age: 55 Year
  Sex: Female

DRUGS (3)
  1. DIOVAN [Suspect]
     Dosage: 1 TABLET (320 MG), DAILY
     Dates: start: 20120302
  2. DIOVAN [Suspect]
     Indication: AORTIC VALVE INCOMPETENCE
     Dosage: 1 TABLET (320 MG), DAILY
     Dates: end: 20120301
  3. DIOVAN [Suspect]
     Indication: HYPERTENSION
     Dosage: 80 MG, DAILY

REACTIONS (12)
  - HEADACHE [None]
  - DYSPNOEA [None]
  - INSOMNIA [None]
  - INFLUENZA [None]
  - DENGUE FEVER [None]
  - PALPITATIONS [None]
  - NAUSEA [None]
  - RESPIRATORY TRACT INFECTION [None]
  - DIARRHOEA [None]
  - BLOOD PRESSURE INCREASED [None]
  - SINUSITIS [None]
  - CHEST PAIN [None]
